FAERS Safety Report 19477797 (Version 1)
Quarter: 2021Q2

REPORT INFORMATION
  Report Type: Spontaneous
  Country: US (occurrence: US)
  Receive Date: 20210630
  Receipt Date: 20210630
  Transmission Date: 20210717
  Serious: No
  Sender: FDA-Public Use
  Company Number: US-KRAMERLABS-2021-US-010208

PATIENT
  Sex: Female

DRUGS (1)
  1. NIZORAL A?D [Suspect]
     Active Substance: KETOCONAZOLE
     Indication: PRURITUS
     Dosage: USED TWO TIMES, 1 WEEK APART
     Route: 061
     Dates: start: 202103, end: 202103

REACTIONS (7)
  - Drug ineffective [Recovered/Resolved with Sequelae]
  - Alopecia [Unknown]
  - Inappropriate schedule of product administration [Recovered/Resolved]
  - Trichorrhexis [Unknown]
  - Product odour abnormal [Recovered/Resolved]
  - Intentional product misuse [Recovered/Resolved]
  - Hair texture abnormal [Unknown]

NARRATIVE: CASE EVENT DATE: 202103
